FAERS Safety Report 7035703 (Version 2)
Quarter: 2019Q2

REPORT INFORMATION
  Report Type: Spontaneous
  Country: FR (occurrence: FR)
  Receive Date: 20090629
  Receipt Date: 20190603
  Transmission Date: 20190711
  Serious: Yes (Hospitalization, Other)
  Sender: FDA-Public Use
  Company Number: FR-BRISTOL-MYERS SQUIBB COMPANY-14678767

PATIENT
  Age: 28 Year
  Sex: Female

DRUGS (4)
  1. TENORMINE [Suspect]
     Active Substance: ATENOLOL
     Indication: PRODUCT USED FOR UNKNOWN INDICATION
     Dosage: 3DF-3TABS
     Route: 046
     Dates: start: 20071018, end: 20071018
  2. CORVASAL (MOLSIDOMINE) [Suspect]
     Active Substance: MOLSIDOMINE
     Indication: PRODUCT USED FOR UNKNOWN INDICATION
     Dosage: 6DF-6TABS
     Route: 048
     Dates: start: 20171018, end: 20171018
  3. IKOREL [Suspect]
     Active Substance: NICORANDIL
     Indication: PRODUCT USED FOR UNKNOWN INDICATION
     Dosage: 4DF-4TABS
     Route: 048
     Dates: start: 20071018, end: 20071018
  4. COUMADIN [Suspect]
     Active Substance: WARFARIN SODIUM
     Indication: PRODUCT USED FOR UNKNOWN INDICATION
     Dosage: 8DF-8TABS
     Route: 048
     Dates: start: 20071018, end: 20071018

REACTIONS (3)
  - Intentional overdose [Unknown]
  - Arrhythmia [Unknown]
  - Bundle branch block right [Unknown]

NARRATIVE: CASE EVENT DATE: 20071018
